FAERS Safety Report 5798084-1 (Version None)
Quarter: 2008Q3

REPORT INFORMATION
  Report Type: 
  Country: None (occurrence: None)
  Receive Date: 20080702
  Receipt Date: 20080624
  Transmission Date: 20090109
  Serious: Yes (Disabling, Other)
  Sender: FDA-Public Use
  Company Number: US-ROCHE-545510

PATIENT
  Sex: Female

DRUGS (2)
  1. PEGASYS [Suspect]
     Route: 058
     Dates: start: 20070814, end: 20080205
  2. RIBAVIRIN [Suspect]
     Route: 048
     Dates: start: 20070814, end: 20080205

REACTIONS (3)
  - NEUROSYPHILIS [None]
  - RETINAL ISCHAEMIA [None]
  - UVEITIS [None]
